FAERS Safety Report 16417601 (Version 2)
Quarter: 2019Q2

REPORT INFORMATION
  Report Type: Spontaneous
  Country: JP (occurrence: JP)
  Receive Date: 20190611
  Receipt Date: 20190628
  Transmission Date: 20190711
  Serious: Yes (Hospitalization, Other)
  Sender: FDA-Public Use
  Company Number: JP-JNJFOC-20190610408

PATIENT
  Age: 45 Year
  Sex: Male

DRUGS (4)
  1. ATARAX-P                           /00058403/ [Concomitant]
     Active Substance: HYDROXYZINE PAMOATE
     Indication: PRODUCT USED FOR UNKNOWN INDICATION
     Route: 065
  2. SERENACE [Concomitant]
     Active Substance: HALOPERIDOL
     Indication: PRODUCT USED FOR UNKNOWN INDICATION
     Route: 065
     Dates: start: 201906
  3. INVEGA [Suspect]
     Active Substance: PALIPERIDONE
     Indication: PRODUCT USED FOR UNKNOWN INDICATION
     Dosage: PALIPERIDONE: 3 MG
     Route: 048
     Dates: end: 20190603
  4. INVEGA [Suspect]
     Active Substance: PALIPERIDONE
     Dosage: PALIPERIDONE: 3 MG
     Route: 048
     Dates: start: 20190610

REACTIONS (1)
  - Gastric perforation [Unknown]

NARRATIVE: CASE EVENT DATE: 20190602
